FAERS Safety Report 14583681 (Version 1)
Quarter: 2018Q1

REPORT INFORMATION
  Report Type: Spontaneous
  Country: FR (occurrence: FR)
  Receive Date: 20180228
  Receipt Date: 20180228
  Transmission Date: 20180509
  Serious: Yes (Death, Life-Threatening, Hospitalization)
  Sender: FDA-Public Use
  Company Number: FR-ELI_LILLY_AND_COMPANY-FR201802011838

PATIENT
  Age: 45 Year
  Sex: Female
  Weight: 47 kg

DRUGS (3)
  1. ARIPIPRAZOLE. [Interacting]
     Active Substance: ARIPIPRAZOLE
     Indication: BIPOLAR DISORDER
     Dosage: 20 MG, DAILY
     Route: 048
     Dates: start: 20171119, end: 20171123
  2. OLANZAPINE. [Suspect]
     Active Substance: OLANZAPINE
     Indication: BIPOLAR DISORDER
     Dosage: 10 MG, DAILY
     Route: 048
     Dates: start: 20171123, end: 20171127
  3. CLOPIXOL A ACTION SEMI PROLONGEE [Interacting]
     Active Substance: ZUCLOPENTHIXOL ACETATE
     Indication: BIPOLAR DISORDER
     Dosage: 2 DF, UNKNOWN
     Route: 030
     Dates: start: 20171128

REACTIONS (4)
  - Shock [Fatal]
  - Drug interaction [Unknown]
  - Electrocardiogram QT prolonged [Fatal]
  - Coma [Fatal]

NARRATIVE: CASE EVENT DATE: 20171128
